FAERS Safety Report 5088916-7 (Version None)
Quarter: 2006Q3

REPORT INFORMATION
  Report Type: 
  Country: None (occurrence: None)
  Receive Date: 20060824
  Receipt Date: 20060824
  Transmission Date: 20061208
  Serious: Yes (Other)
  Sender: FDA-Public Use
  Company Number: None

PATIENT

DRUGS (2)
  1. TOPOTECAN  4 GM [Suspect]
     Indication: MENINGEAL DISORDER
     Dosage: IT
     Route: 037
     Dates: start: 20060714, end: 20060731
  2. TOPOTECAN  4 GM [Suspect]

REACTIONS (2)
  - PHARMACEUTICAL PRODUCT COMPLAINT [None]
  - PYREXIA [None]
